FAERS Safety Report 17589957 (Version 2)
Quarter: 2021Q2

REPORT INFORMATION
  Report Type: Spontaneous
  Country: US (occurrence: US)
  Receive Date: 20200327
  Receipt Date: 20210413
  Transmission Date: 20210716
  Serious: No
  Sender: FDA-Public Use
  Company Number: US-ALLERGAN-2008677US

PATIENT
  Age: 74 Year
  Sex: Female

DRUGS (1)
  1. LATISSE [Suspect]
     Active Substance: BIMATOPROST
     Indication: GROWTH OF EYELASHES
     Dosage: 1 DROP APPLIED TO EACH INDIVIDUAL APPLICATOR TO UPPER EYELASH LINE
     Route: 065
     Dates: start: 20200123

REACTIONS (3)
  - Eyelid irritation [Not Recovered/Not Resolved]
  - Rash [Not Recovered/Not Resolved]
  - Eyelids pruritus [Not Recovered/Not Resolved]
